FAERS Safety Report 8988493 (Version 1)
Quarter: 2012Q4

REPORT INFORMATION
  Report Type: Spontaneous
  Country: US (occurrence: None)
  Receive Date: 20121224
  Receipt Date: 20121224
  Transmission Date: 20130627
  Serious: Yes (Other)
  Sender: FDA-Public Use
  Company Number: None

PATIENT
  Age: 43 Year
  Sex: Female
  Weight: 52.16 kg

DRUGS (1)
  1. PEG-3350\SODIUM CHLORIDE\SODIUM BICARBONATE\POTASSIUM CHLORIDE [Suspect]
     Indication: COLONOSCOPY
     Dosage: 8 oz solution every 15 min po
     Route: 048
     Dates: start: 20121218, end: 20121218

REACTIONS (11)
  - Pyrexia [None]
  - Tremor [None]
  - Palpitations [None]
  - Erythema [None]
  - Blood pressure increased [None]
  - Dehydration [None]
  - Renal pain [None]
  - Dysphagia [None]
  - Dysuria [None]
  - Dysuria [None]
  - Hypersensitivity [None]
